FAERS Safety Report 19615400 (Version 1)
Quarter: 2021Q3

REPORT INFORMATION
  Report Type: Spontaneous
  Country: GB (occurrence: GB)
  Receive Date: 20210727
  Receipt Date: 20210727
  Transmission Date: 20211014
  Serious: Yes (Other)
  Sender: FDA-Public Use
  Company Number: GB-MYLANLABS-2021M1045682

PATIENT
  Sex: Female

DRUGS (2)
  1. LORATADINE. [Suspect]
     Active Substance: LORATADINE
     Indication: PRODUCT USED FOR UNKNOWN INDICATION
     Dosage: UNK
     Route: 065
  2. MODERNA COVID?19 VACCINE [Suspect]
     Active Substance: CX-024414
     Indication: PRODUCT USED FOR UNKNOWN INDICATION
     Dosage: DOSE 1
     Route: 065
     Dates: start: 20210618, end: 20210618

REACTIONS (7)
  - Nausea [Unknown]
  - Feeling hot [Unknown]
  - Infection [Unknown]
  - Chest pain [Unknown]
  - Vaccination site vesicles [Unknown]
  - Chest discomfort [Unknown]
  - Swollen tongue [Recovered/Resolved]

NARRATIVE: CASE EVENT DATE: 20210618
